FAERS Safety Report 24927651 (Version 1)
Quarter: 2025Q1

REPORT INFORMATION
  Report Type: Spontaneous
  Country: US (occurrence: None)
  Receive Date: 20250204
  Receipt Date: 20250204
  Transmission Date: 20250409
  Serious: No
  Sender: FDA-CTU
  Company Number: None

PATIENT
  Age: 38 Year
  Sex: Male

DRUGS (1)
  1. SOTYKTU [Suspect]
     Active Substance: DEUCRAVACITINIB
     Indication: Psoriasis
     Dosage: OTHER QUANTITY : 1 T PO DAILY;?FREQUENCY : DAILY;?
     Route: 048
     Dates: start: 20241214

REACTIONS (5)
  - Stomatitis [None]
  - Fatigue [None]
  - Nasopharyngitis [None]
  - Oropharyngeal pain [None]
  - Cough [None]
